FAERS Safety Report 9189424 (Version 1)
Quarter: 2013Q1

REPORT INFORMATION
  Report Type: Spontaneous
  Country: US (occurrence: None)
  Receive Date: 20130322
  Receipt Date: 20130322
  Transmission Date: 20140127
  Serious: Yes (Hospitalization, Other)
  Sender: FDA-Public Use
  Company Number: AUR-APL-2013-02305

PATIENT
  Age: 75 Year
  Sex: Female
  Weight: 54.42 kg

DRUGS (5)
  1. METFORMIN (METFORMIN) [Suspect]
     Indication: DIABETES MELLITUS
  2. LIPITOR (ATORVASTATIN CALCIUM) [Suspect]
     Indication: BLOOD CHOLESTEROL INCREASED
     Dates: start: 2006, end: 20120715
  3. LIPITOR (ATORVASTATIN CALCIUM) [Suspect]
     Indication: BLOOD CHOLESTEROL ABNORMAL
     Dates: start: 2006, end: 20120715
  4. TOPROL XL (METOPROLOL SUCCINATE) [Concomitant]
  5. BABY ASPIRIN (ACETYLSALICYLIC ACID) [Concomitant]

REACTIONS (5)
  - Thrombosis [None]
  - Anaemia [None]
  - White blood cell count decreased [None]
  - Macular degeneration [None]
  - Visual field defect [None]
